FAERS Safety Report 23604759 (Version 1)
Quarter: 2024Q1

REPORT INFORMATION
  Report Type: Spontaneous
  Country: US (occurrence: US)
  Receive Date: 20240307
  Receipt Date: 20240307
  Transmission Date: 20240409
  Serious: No
  Sender: FDA-Public Use
  Company Number: US-IMMUNOGEN, INC.-US-IMGN-23-00772

PATIENT
  Sex: Female

DRUGS (1)
  1. ELAHERE [Suspect]
     Active Substance: MIRVETUXIMAB SORAVTANSINE-GYNX
     Indication: Ovarian cancer
     Dosage: UNK, UNK
     Route: 042
     Dates: start: 20231215

REACTIONS (9)
  - Pyrexia [Unknown]
  - Dysmenorrhoea [Unknown]
  - Fatigue [Unknown]
  - Abdominal pain [Unknown]
  - Arthralgia [Unknown]
  - Back pain [Unknown]
  - Decreased appetite [Unknown]
  - Diarrhoea [Unknown]
  - Nausea [Unknown]
